FAERS Safety Report 19936791 (Version 2)
Quarter: 2021Q4

REPORT INFORMATION
  Report Type: Spontaneous
  Country: FR (occurrence: FR)
  Receive Date: 20211009
  Receipt Date: 20211126
  Transmission Date: 20220303
  Serious: Yes (Other)
  Sender: FDA-Public Use
  Company Number: FR-NOVARTISPH-NVSC2021FR231090

PATIENT
  Age: 32 Year
  Sex: Female

DRUGS (2)
  1. COSENTYX [Suspect]
     Active Substance: SECUKINUMAB
     Indication: Ankylosing spondylitis
     Dosage: 300 MG, QMO (STARTED 2018/2019)
     Route: 058
     Dates: start: 2018
  2. CORTISONE [Concomitant]
     Active Substance: CORTISONE
     Indication: Skin lesion
     Dosage: 1 MG/KG
     Route: 065

REACTIONS (3)
  - Pyoderma gangrenosum [Not Recovered/Not Resolved]
  - Skin ulcer [Unknown]
  - Paradoxical drug reaction [Unknown]

NARRATIVE: CASE EVENT DATE: 20210920
